FAERS Safety Report 7971344-1 (Version None)
Quarter: 2011Q4

REPORT INFORMATION
  Report Type: 
  Country: None (occurrence: None)
  Receive Date: 20111212
  Receipt Date: 20111206
  Transmission Date: 20120403
  Serious: Yes (Life-Threatening, Hospitalization, Other)
  Sender: FDA-Public Use
  Company Number: US-ASTRAZENECA-2011SE63824

PATIENT
  Age: 45 Year
  Sex: Male
  Weight: 61.2 kg

DRUGS (27)
  1. VANDETANIB [Suspect]
     Route: 048
     Dates: start: 20111017, end: 20111030
  2. MORPHINE SULFATE [Concomitant]
     Dosage: 50 MG BID PRN
     Route: 048
  3. AMLODIPINE BESYLATE [Concomitant]
     Route: 048
  4. VALPROATE SODIUM [Concomitant]
     Route: 048
  5. AMBIEN [Concomitant]
     Dosage: 10 MG QHS PRN
     Route: 048
  6. CELEXA [Concomitant]
  7. ANTICONVULSANT [Concomitant]
  8. CALCIUM 600 + D [Concomitant]
     Route: 048
  9. POTASSIUM CHLORIDE [Concomitant]
     Route: 048
  10. BALANCED B COMPLEX 50 [Concomitant]
     Route: 048
  11. VANDETANIB [Suspect]
     Indication: THYROID CANCER
     Dosage: DAILY
     Route: 048
  12. OXYCODONE HCL [Concomitant]
     Dosage: PRN
     Route: 048
  13. OXYCODONE HCL [Concomitant]
     Dosage: 5 MG EVERY FOUR HOURS AS NEEDED
     Route: 048
  14. OXYCODONE HCL [Concomitant]
     Dosage: 5 MG 2Q 4 HOURS PRN
     Route: 048
  15. TOPROL-XL [Concomitant]
     Route: 048
  16. PLAVIX [Concomitant]
     Route: 048
  17. MORPHINE SULFATE [Concomitant]
     Dosage: PRN
     Route: 048
  18. TORSEMIDE [Concomitant]
     Route: 048
  19. SYNTHROID [Concomitant]
     Route: 048
  20. ASPIRIN [Concomitant]
     Route: 048
  21. AMBIEN [Concomitant]
     Route: 048
  22. PROTONIX [Concomitant]
     Route: 048
  23. VANDETANIB [Suspect]
     Indication: THYROID CANCER METASTATIC
     Dosage: DAILY
     Route: 048
  24. VANDETANIB [Suspect]
     Route: 048
     Dates: start: 20111017, end: 20111030
  25. LORAZEPAM [Concomitant]
     Dosage: 30 MG QHS PRN
  26. KEPPRA [Concomitant]
     Route: 048
  27. PLAVIX [Concomitant]
     Route: 048

REACTIONS (16)
  - CONVULSION [None]
  - DYSPHAGIA [None]
  - DEPRESSION [None]
  - HYPOTHYROIDISM [None]
  - STOMATITIS [None]
  - ASPIRATION TRACHEAL [None]
  - LEUKOENCEPHALOPATHY [None]
  - HYPERTENSIVE CRISIS [None]
  - CHEST PAIN [None]
  - CONSTIPATION [None]
  - HEADACHE [None]
  - GASTROINTESTINAL MOTILITY DISORDER [None]
  - PHARYNGEAL DISORDER [None]
  - HYPERTENSIVE ENCEPHALOPATHY [None]
  - FATIGUE [None]
  - DIARRHOEA [None]
